FAERS Safety Report 5418324-8 (Version None)
Quarter: 2007Q3

REPORT INFORMATION
  Report Type: 
  Country: None (occurrence: None)
  Receive Date: 20070817
  Receipt Date: 20070810
  Transmission Date: 20080115
  Serious: Yes (Other)
  Sender: FDA-Public Use
  Company Number: US-ASTRAZENECA-2007UW19498

PATIENT
  Age: 28693 Day
  Sex: Male

DRUGS (12)
  1. CRESTOR [Interacting]
     Indication: DRUG USE FOR UNKNOWN INDICATION
     Route: 048
     Dates: start: 20070410
  2. TRICOR [Interacting]
  3. RANEXA [Suspect]
     Indication: ANGINA PECTORIS
     Route: 048
     Dates: start: 20070410, end: 20070612
  4. RANEXA [Suspect]
     Route: 048
     Dates: start: 20070613, end: 20070701
  5. ZOCOR [Concomitant]
     Dates: start: 20070409
  6. IMDUR [Concomitant]
  7. ATENOLOL [Concomitant]
  8. COUMADIN [Concomitant]
  9. NEXIUM [Concomitant]
     Route: 048
  10. FOLIC ACID [Concomitant]
  11. CELEBREX [Concomitant]
     Indication: ARTHRALGIA
     Dates: start: 20070515
  12. ASPIRIN [Concomitant]

REACTIONS (7)
  - ARTHRALGIA [None]
  - BLOOD LACTATE DEHYDROGENASE INCREASED [None]
  - DRUG INTERACTION [None]
  - HEPATIC CANCER METASTATIC [None]
  - MYALGIA [None]
  - OEDEMA PERIPHERAL [None]
  - URINE COLOUR ABNORMAL [None]
